FAERS Safety Report 21436205 (Version 2)
Quarter: 2022Q4

REPORT INFORMATION
  Report Type: Report from Study
  Country: GR (occurrence: GR)
  Receive Date: 20221010
  Receipt Date: 20221021
  Transmission Date: 20230112
  Serious: Yes (Death, Hospitalization)
  Sender: FDA-Public Use
  Company Number: GR-ABBVIE-4145878

PATIENT
  Sex: Female
  Weight: 55 kg

DRUGS (2)
  1. CARBIDOPA\LEVODOPA [Suspect]
     Active Substance: CARBIDOPA\LEVODOPA
     Indication: Parkinson^s disease
     Route: 050
  2. CARBIDOPA\LEVODOPA [Suspect]
     Active Substance: CARBIDOPA\LEVODOPA
     Dosage: MORNING DOSE: 5.8ML; CONTINUOUS RATE: 2.1ML/H; EXTRA DOSE: 1ML
     Route: 050
     Dates: start: 20141029

REACTIONS (4)
  - COVID-19 [Not Recovered/Not Resolved]
  - Dysphonia [Not Recovered/Not Resolved]
  - Sputum retention [Not Recovered/Not Resolved]
  - Pneumonia [Fatal]

NARRATIVE: CASE EVENT DATE: 20220101
